FAERS Safety Report 7246793 (Version 3)
Quarter: 2013Q3

REPORT INFORMATION
  Report Type: Spontaneous
  Country: CA (occurrence: CA)
  Receive Date: 20100115
  Receipt Date: 20130724
  Transmission Date: 20140515
  Serious: Yes (Death, Hospitalization)
  Sender: FDA-Public Use
  Company Number: CA-ROCHE-677966

PATIENT
  Age: 8 Month
  Sex: Male

DRUGS (16)
  1. CELLCEPT [Suspect]
     Indication: PROPHYLAXIS AGAINST TRANSPLANT REJECTION
     Route: 048
  2. CALCITRIOL [Suspect]
     Indication: PRODUCT USED FOR UNKNOWN INDICATION
     Route: 065
  3. ARANESP [Suspect]
     Indication: RENAL FAILURE CHRONIC
     Route: 058
  4. ARANESP [Suspect]
     Dosage: 10 UG, 1 PER 5 DAYS, DOSE TITRATED TO A MAXIMUM OF 50 UG
     Route: 058
     Dates: start: 20090406, end: 20090504
  5. TACROLIMUS [Concomitant]
     Route: 048
  6. ETACRYNIC ACID [Concomitant]
     Route: 042
  7. METOLAZONE [Concomitant]
     Route: 048
  8. SODIUM CHLORIDE [Concomitant]
     Route: 065
  9. CLOBAZAM [Concomitant]
     Route: 065
  10. LEVETIRACETAM [Concomitant]
     Route: 065
  11. DOMPERIDONE [Concomitant]
     Route: 048
  12. OMEPRAZOLE [Concomitant]
     Route: 065
  13. ENALAPRIL [Concomitant]
     Route: 048
  14. FUROSEMIDE [Concomitant]
     Route: 065
  15. TOPIRAMATE [Concomitant]
     Route: 065
  16. HYDROCHLOROTHIAZIDE/SPIRONOLACTONE [Concomitant]
     Route: 065

REACTIONS (19)
  - Packed red blood cell transfusion [Fatal]
  - Staphylococcus test positive [Fatal]
  - Aspiration [Fatal]
  - Continuous positive airway pressure [Fatal]
  - Convulsion [Fatal]
  - Developmental delay [Fatal]
  - Device related infection [Fatal]
  - Haematocrit decreased [Fatal]
  - Haemoglobin decreased [Fatal]
  - Pyrexia [Fatal]
  - Wheezing [Fatal]
  - No therapeutic response [Fatal]
  - Oxygen supplementation [Fatal]
  - Aplasia pure red cell [Fatal]
  - Staphylococcal infection [Fatal]
  - Enterococcal infection [Fatal]
  - Respiratory distress [Fatal]
  - Thrombosis [Fatal]
  - Transplant rejection [Fatal]
